FAERS Safety Report 15746234 (Version 1)
Quarter: 2018Q4

REPORT INFORMATION
  Report Type: Spontaneous
  Country: GB (occurrence: GB)
  Receive Date: 20181220
  Receipt Date: 20181220
  Transmission Date: 20190205
  Serious: Yes (Other)
  Sender: FDA-Public Use
  Company Number: GB-SAKK-2018SA387626AA

PATIENT
  Age: 46 Year
  Sex: Male

DRUGS (2)
  1. ALEMTUZUMAB [Suspect]
     Active Substance: ALEMTUZUMAB
     Dosage: UNK
     Route: 042
     Dates: start: 2018, end: 2018
  2. ALEMTUZUMAB [Suspect]
     Active Substance: ALEMTUZUMAB
     Indication: MULTIPLE SCLEROSIS
     Dosage: UNK
     Route: 042
     Dates: start: 2017, end: 2017

REACTIONS (5)
  - Autoimmune thyroiditis [Unknown]
  - Endocrine ophthalmopathy [Unknown]
  - Hypothyroidism [Unknown]
  - Exophthalmos [Unknown]
  - Basedow^s disease [Unknown]
